FAERS Safety Report 4835006-1 (Version None)
Quarter: 2005Q4

REPORT INFORMATION
  Report Type: 
  Country: None (occurrence: None)
  Receive Date: 20051114
  Receipt Date: 20051101
  Transmission Date: 20060501
  Serious: Yes (Hospitalization)
  Sender: FDA-Public Use
  Company Number: 2005BI013266

PATIENT
  Age: 38 Year
  Sex: Male
  Weight: 108.8633 kg

DRUGS (5)
  1. AVONEX [Suspect]
     Indication: MULTIPLE SCLEROSIS
     Dosage: 30 UG; QW; IM
     Route: 030
     Dates: start: 20020801, end: 20040101
  2. AVONEX [Suspect]
     Indication: MULTIPLE SCLEROSIS
     Dosage: 30 UG; QW; IM
     Route: 030
     Dates: start: 20040101
  3. GLUCOSAMINE SULFATE [Concomitant]
  4. MULTI-VITAMIN [Concomitant]
  5. FIBER [Concomitant]

REACTIONS (8)
  - DIARRHOEA [None]
  - FALL [None]
  - FATIGUE [None]
  - HYPOAESTHESIA [None]
  - MICTURITION URGENCY [None]
  - PNEUMONIA [None]
  - RENAL FAILURE [None]
  - SEXUAL DYSFUNCTION [None]
